FAERS Safety Report 4292105-3 (Version None)
Quarter: 2004Q1

REPORT INFORMATION
  Report Type: 
  Country: None (occurrence: None)
  Receive Date: 20040126
  Receipt Date: 20030911
  Transmission Date: 20041129
  Serious: No
  Sender: FDA-Public Use
  Company Number: USA030946098

PATIENT
  Age: 73 Year
  Sex: Female
  Weight: 109 kg

DRUGS (10)
  1. FORTEO [Suspect]
     Indication: OSTEOPOROSIS
     Dosage: 20 UG/DAY
     Dates: start: 20030903
  2. PROZAC [Concomitant]
  3. LORAZEPAM [Concomitant]
  4. VERAPAMIL [Concomitant]
  5. SINGULAIR [Concomitant]
  6. ALBUTEROL [Concomitant]
  7. PREDNISONE [Concomitant]
  8. ADVAIR DISKUS 100/50 [Concomitant]
  9. XALATAN [Concomitant]
  10. PREVACID [Concomitant]

REACTIONS (9)
  - DIZZINESS [None]
  - FATIGUE [None]
  - FEELING ABNORMAL [None]
  - FLUSHING [None]
  - HYPERHIDROSIS [None]
  - INFLUENZA LIKE ILLNESS [None]
  - MYALGIA [None]
  - NAUSEA [None]
  - NERVOUSNESS [None]
